FAERS Safety Report 7222535-9 (Version None)
Quarter: 2011Q1

REPORT INFORMATION
  Report Type: 
  Country: None (occurrence: None)
  Receive Date: 20110112
  Receipt Date: 20100426
  Transmission Date: 20110831
  Serious: Yes (Other)
  Sender: FDA-Public Use
  Company Number: NL-TEVA-262820ISR

PATIENT
  Age: 52 Year
  Sex: Male

DRUGS (3)
  1. CISPLATIN [Suspect]
     Indication: METASTASES TO PERITONEUM
     Route: 042
  2. CAPECITABINE [Suspect]
     Indication: METASTASES TO PERITONEUM
     Route: 048
  3. ETOPOSIDE [Suspect]
     Indication: METASTASES TO PERITONEUM
     Route: 042

REACTIONS (5)
  - NAUSEA [None]
  - VOMITING [None]
  - ABDOMINAL PAIN UPPER [None]
  - PNEUMATOSIS INTESTINALIS [None]
  - DIARRHOEA [None]
